FAERS Safety Report 5693642-7 (Version None)
Quarter: 2008Q2

REPORT INFORMATION
  Report Type: 
  Country: None (occurrence: None)
  Receive Date: 20080328
  Receipt Date: 20070321
  Transmission Date: 20081010
  Serious: Yes (Other)
  Sender: FDA-Public Use
  Company Number: HQWYE506522MAR07

PATIENT

DRUGS (1)
  1. PROTONIX [Suspect]

REACTIONS (1)
  - DRUG SCREEN POSITIVE [None]
